FAERS Safety Report 8316967-5 (Version None)
Quarter: 2012Q2

REPORT INFORMATION
  Report Type: 
  Country: None (occurrence: None)
  Receive Date: 20120427
  Receipt Date: 20120424
  Transmission Date: 20120825
  Serious: Yes (Death)
  Sender: FDA-Public Use
  Company Number: US-PFIZER INC-2012087559

PATIENT
  Sex: Female
  Weight: 83.447 kg

DRUGS (1)
  1. REVATIO [Suspect]
     Indication: CARDIAC DISORDER
     Dosage: UNKNOWN DOSE 3 TABLETS, 3XDAY
     Route: 048

REACTIONS (4)
  - HEPATIC FAILURE [None]
  - HYPOTENSION [None]
  - CARDIAC FAILURE [None]
  - RENAL FAILURE [None]
